FAERS Safety Report 6254923-1 (Version None)
Quarter: 2009Q3

REPORT INFORMATION
  Report Type: 
  Country: None (occurrence: None)
  Receive Date: 20090702
  Receipt Date: 20080609
  Transmission Date: 20100115
  Serious: No
  Sender: FDA-Public Use
  Company Number: A0732237A

PATIENT
  Age: 59 Year
  Sex: Female

DRUGS (10)
  1. PARNATE [Suspect]
     Indication: DEPRESSION
     Dosage: 80MG TWICE PER DAY
     Route: 048
     Dates: start: 20060901
  2. METFORMIN HCL [Concomitant]
  3. TOPROL-XL [Concomitant]
  4. SINGULAIR [Concomitant]
  5. LEVOTHYROXINE SODIUM [Concomitant]
  6. AMARYL [Concomitant]
  7. LASIX [Concomitant]
  8. LOTREL [Concomitant]
  9. POTASSIUM CHLORIDE [Concomitant]
  10. LANTUS [Concomitant]

REACTIONS (4)
  - DRUG ADMINISTRATION ERROR [None]
  - KNEE OPERATION [None]
  - LIGAMENT RUPTURE [None]
  - MUSCLE SPASMS [None]
